FAERS Safety Report 7532734-4 (Version None)
Quarter: 2011Q2

REPORT INFORMATION
  Report Type: 
  Country: None (occurrence: None)
  Receive Date: 20110608
  Receipt Date: 20110602
  Transmission Date: 20111010
  Serious: Yes (Other)
  Sender: FDA-Public Use
  Company Number: A0930067A

PATIENT
  Age: 70 Year
  Sex: Female

DRUGS (13)
  1. PROTONIX [Concomitant]
  2. KEPPRA [Concomitant]
  3. LACTULOSE [Concomitant]
  4. GLUCOSAMINE [Concomitant]
  5. ONE A DAY VITAMIN [Concomitant]
  6. FERROUS SULFATE TAB [Concomitant]
  7. FISH OIL [Concomitant]
  8. LAMICTAL [Suspect]
     Dosage: 300MG TWICE PER DAY
     Route: 048
     Dates: start: 19980101
  9. SYNTHROID [Concomitant]
  10. DIOVAN [Concomitant]
  11. BENEFIBER [Concomitant]
  12. ZOLOFT [Concomitant]
  13. VITAMIN D [Concomitant]

REACTIONS (1)
  - PNEUMONIA [None]
